FAERS Safety Report 22078899 (Version 1)
Quarter: 2023Q1

REPORT INFORMATION
  Report Type: Report from Study
  Country: US (occurrence: None)
  Receive Date: 20230309
  Receipt Date: 20230309
  Transmission Date: 20230417
  Serious: Yes (Hospitalization)
  Sender: FDA-Public Use
  Company Number: 2023A051380

PATIENT
  Sex: Male

DRUGS (4)
  1. TAGRISSO [Suspect]
     Active Substance: OSIMERTINIB
     Indication: Lung carcinoma cell type unspecified stage 0
     Route: 048
  2. LACTULOSE [Concomitant]
     Active Substance: LACTULOSE
  3. MUCINEX [Concomitant]
     Active Substance: GUAIFENESIN
  4. ALBUTEROL [Concomitant]
     Active Substance: ALBUTEROL

REACTIONS (8)
  - Pneumonia [Unknown]
  - Nasopharyngitis [Unknown]
  - Mobility decreased [Unknown]
  - Feeding disorder [Unknown]
  - Hypotension [Unknown]
  - Oxygen saturation decreased [Unknown]
  - Product dose omission issue [Unknown]
  - Urinary tract infection [Unknown]
